FAERS Safety Report 25397395 (Version 2)
Quarter: 2025Q2

REPORT INFORMATION
  Report Type: Spontaneous
  Country: US (occurrence: US)
  Receive Date: 20250604
  Receipt Date: 20250620
  Transmission Date: 20250717
  Serious: No
  Sender: NOVARTIS
  Company Number: US-002147023-NVSC2025US089625

PATIENT
  Age: 9 Year
  Sex: Male

DRUGS (7)
  1. TERBINAFINE [Suspect]
     Active Substance: TERBINAFINE
     Indication: Acne conglobata
     Route: 048
  2. GRISEOFULVIN [Concomitant]
     Active Substance: GRISEOFULVIN
     Indication: Tinea capitis
     Dosage: 20 MG/KG, QD
     Route: 048
  3. GRISEOFULVIN [Concomitant]
     Active Substance: GRISEOFULVIN
     Indication: Kerion
  4. KETOCONAZOLE [Concomitant]
     Active Substance: KETOCONAZOLE
     Indication: Tinea capitis
     Route: 050
  5. KETOCONAZOLE [Concomitant]
     Active Substance: KETOCONAZOLE
     Indication: Kerion
  6. PREDNISOLONE [Concomitant]
     Active Substance: PREDNISOLONE
     Indication: Skin mass
     Route: 048
  7. CEPHALEXIN [Concomitant]
     Active Substance: CEPHALEXIN
     Indication: Skin mass
     Route: 065

REACTIONS (1)
  - Drug ineffective for unapproved indication [Unknown]
